FAERS Safety Report 23707844 (Version 2)
Quarter: 2024Q2

REPORT INFORMATION
  Report Type: Spontaneous
  Country: CN (occurrence: CN)
  Receive Date: 20240404
  Receipt Date: 20240408
  Transmission Date: 20240716
  Serious: Yes (Life-Threatening, Hospitalization, Other)
  Sender: FDA-Public Use
  Company Number: CN-MLMSERVICE-20240326-4908729-1

PATIENT
  Age: 34 Year
  Sex: Female

DRUGS (4)
  1. METHYLPREDNISOLONE SODIUM SUCCINATE [Suspect]
     Active Substance: METHYLPREDNISOLONE SODIUM SUCCINATE
     Indication: Neuromyelitis optica spectrum disorder
     Dosage: 1 G, 1X/DAY
     Route: 042
  2. PREDNISONE [Suspect]
     Active Substance: PREDNISONE
     Indication: Neuromyelitis optica spectrum disorder
     Dosage: 1 MG/KG
     Route: 048
  3. PREDNISONE [Suspect]
     Active Substance: PREDNISONE
     Dosage: UNK, WEEKLY REDUCTION OF 5 MG
     Route: 048
  4. ENTECAVIR [Concomitant]
     Active Substance: ENTECAVIR
     Indication: Prophylaxis
     Dosage: 0.5 MG, 1X/DAY

REACTIONS (3)
  - Pneumonia [Recovering/Resolving]
  - Gastrointestinal haemorrhage [Recovered/Resolved]
  - Off label use [Unknown]
